FAERS Safety Report 18948225 (Version 2)
Quarter: 2021Q2

REPORT INFORMATION
  Report Type: Report from Study
  Country: ES (occurrence: ES)
  Receive Date: 20210226
  Receipt Date: 20210504
  Transmission Date: 20210717
  Serious: Yes (Hospitalization)
  Sender: FDA-Public Use
  Company Number: ES-TAIHO ONCOLOGY  INC-IM-2021-00093

PATIENT
  Age: 72 Year
  Sex: Female
  Weight: 48.6 kg

DRUGS (16)
  1. OMEPRAZOLE. [Concomitant]
     Active Substance: OMEPRAZOLE
     Indication: PROPHYLAXIS
     Dosage: 20 MG, QD
     Route: 048
  2. LOSARTAN. [Concomitant]
     Active Substance: LOSARTAN
     Indication: HYPERTENSION
     Dosage: 50 MG, QD
     Route: 048
  3. PARACETAMOL [Concomitant]
     Active Substance: ACETAMINOPHEN
     Indication: PAIN PROPHYLAXIS
     Dosage: 1 G, PRN
     Route: 048
  4. EUTIROX [Concomitant]
     Active Substance: LEVOTHYROXINE SODIUM
     Dosage: 100 UG, OTHER
     Route: 048
  5. FENTANYL. [Concomitant]
     Active Substance: FENTANYL
     Dosage: 50 UG, OTHER
     Route: 062
     Dates: start: 20210220
  6. DEXAMETHASONE. [Concomitant]
     Active Substance: DEXAMETHASONE
     Dosage: 4 MG, BID
     Route: 051
     Dates: start: 20210216, end: 20210219
  7. DEXAMETHASONE. [Concomitant]
     Active Substance: DEXAMETHASONE
     Dosage: 4 MG, BID
     Route: 048
     Dates: start: 20210220
  8. TAS?102 [Suspect]
     Active Substance: TIPIRACIL HYDROCHLORIDE\TRIFLURIDINE
     Indication: RECTAL ADENOCARCINOMA
     Dosage: 90 MG (45 MG/M2), BID, ON DAYS 1?5 AND 8?12 OF EACH 28?DAY CYCLE
     Route: 048
     Dates: start: 20210203, end: 20210214
  9. DEXAMETHASONE. [Concomitant]
     Active Substance: DEXAMETHASONE
     Indication: PROPHYLAXIS
     Dosage: 4 MG, QD
     Route: 048
  10. FENTANYL. [Concomitant]
     Active Substance: FENTANYL
     Indication: PAIN PROPHYLAXIS
     Dosage: 37 UG, OTHER
     Route: 051
     Dates: start: 20210216, end: 20210219
  11. FENTANYL. [Concomitant]
     Active Substance: FENTANYL
     Dosage: 37 UG, OTHER
     Route: 062
     Dates: end: 20210215
  12. CALCIUM [Concomitant]
     Active Substance: CALCIUM
     Indication: PROPHYLAXIS
     Dosage: 1000 MG, QD
     Route: 048
     Dates: end: 20210219
  13. CALCIFEDIOL [Concomitant]
     Active Substance: CALCIFEDIOL
     Indication: VITAMIN SUPPLEMENTATION
     Dosage: 0.266 MG, 1X A MONTH
     Route: 048
     Dates: end: 20210219
  14. HYDROCHLOROTHIAZIDE. [Concomitant]
     Active Substance: HYDROCHLOROTHIAZIDE
     Indication: HYPERTENSION
     Dosage: 25 MG, QD
     Route: 048
  15. COLECALCIFEROL [Concomitant]
     Active Substance: CHOLECALCIFEROL
     Indication: PROPHYLAXIS
     Dosage: 880 IU, QD
     Route: 048
  16. EUTIROX [Concomitant]
     Active Substance: LEVOTHYROXINE SODIUM
     Indication: HYPOTHYROIDISM
     Dosage: 75 UG, OTHER
     Route: 048

REACTIONS (2)
  - Jaundice [Not Recovered/Not Resolved]
  - Blood bilirubin increased [Not Recovered/Not Resolved]

NARRATIVE: CASE EVENT DATE: 20210216
